FAERS Safety Report 14688306 (Version 1)
Quarter: 2018Q1

REPORT INFORMATION
  Report Type: Spontaneous
  Country: FR (occurrence: FR)
  Receive Date: 20180328
  Receipt Date: 20180328
  Transmission Date: 20180509
  Serious: Yes (Other)
  Sender: FDA-Public Use
  Company Number: FR-MERCK KGAA-2044670

PATIENT
  Age: 32 Year
  Sex: Male

DRUGS (2)
  1. CYNOMEL [Concomitant]
     Active Substance: LIOTHYRONINE SODIUM
  2. NOVOTHYROX [Suspect]
     Active Substance: LEVOTHYROXINE SODIUM
     Indication: HYPOTHYROIDISM

REACTIONS (12)
  - Arthralgia [Recovered/Resolved]
  - Tendon pain [None]
  - Gastrointestinal disorder [Recovered/Resolved]
  - Weight decreased [None]
  - Loss of personal independence in daily activities [None]
  - Headache [Recovered/Resolved]
  - Diarrhoea [None]
  - Fatigue [None]
  - Blood thyroid stimulating hormone decreased [Not Recovered/Not Resolved]
  - General physical health deterioration [None]
  - Vitamin D increased [None]
  - Colitis [None]

NARRATIVE: CASE EVENT DATE: 201709
